FAERS Safety Report 7478758-7 (Version None)
Quarter: 2011Q2

REPORT INFORMATION
  Report Type: 
  Country: None (occurrence: None)
  Receive Date: 20110513
  Receipt Date: 20110504
  Transmission Date: 20111010
  Serious: Yes (Other)
  Sender: FDA-Public Use
  Company Number: NL-JNJFOC-20110502884

PATIENT
  Age: 38 Year
  Sex: Male

DRUGS (4)
  1. PREDNISONE TAB [Concomitant]
     Indication: CROHN'S DISEASE
     Route: 042
  2. AZATHIOPRINE [Concomitant]
     Indication: CROHN'S DISEASE
     Route: 042
  3. INFLIXIMAB, RECOMBINANT [Suspect]
     Route: 042
  4. INFLIXIMAB, RECOMBINANT [Suspect]
     Indication: CROHN'S DISEASE
     Dosage: FIRST DOSE
     Route: 042

REACTIONS (4)
  - ESCHERICHIA TEST POSITIVE [None]
  - KLEBSIELLA TEST POSITIVE [None]
  - MITOCHONDRIAL ENCEPHALOMYOPATHY [None]
  - ACUTE ABDOMEN [None]
